FAERS Safety Report 7458472-4 (Version None)
Quarter: 2011Q2

REPORT INFORMATION
  Report Type: 
  Country: None (occurrence: None)
  Receive Date: 20110504
  Receipt Date: 20110426
  Transmission Date: 20111010
  Serious: Yes (Hospitalization)
  Sender: FDA-Public Use
  Company Number: R0001413A

PATIENT
  Sex: Male

DRUGS (4)
  1. FLU TRIVALENT SPLIT + AS03/2 [Suspect]
     Route: 030
     Dates: start: 20081014, end: 20081014
  2. DIGOXIN [Suspect]
     Indication: ATRIAL FIBRILLATION
     Dosage: 250MG PER DAY
     Route: 048
     Dates: start: 20000101, end: 20081120
  3. ATENOLOL [Concomitant]
     Indication: ATRIAL FIBRILLATION
     Dosage: 25MG PER DAY
     Route: 048
     Dates: start: 20000101, end: 20081120
  4. WARFARIN [Suspect]
     Indication: ATRIAL FIBRILLATION
     Dosage: 8MG PER DAY
     Route: 048
     Dates: start: 20000101

REACTIONS (1)
  - TOXICITY TO VARIOUS AGENTS [None]
